FAERS Safety Report 8767414 (Version 4)
Quarter: 2013Q2

REPORT INFORMATION
  Report Type: Report from Study
  Country: JP (occurrence: JP)
  Receive Date: 20120904
  Receipt Date: 20130429
  Transmission Date: 20140414
  Serious: Yes (Hospitalization)
  Sender: FDA-Public Use
  Company Number: JP-VERTEX PHARMACEUTICAL INC.-2012-020463

PATIENT
  Age: 68 Year
  Sex: Female

DRUGS (13)
  1. VX-950 (TELAPREVIR) [Suspect]
     Indication: CHRONIC HEPATITIS C
     Dosage: 1500 MG, QD
     Route: 048
     Dates: start: 20120612, end: 20120807
  2. REBETOL [Suspect]
     Indication: CHRONIC HEPATITIS C
     Dosage: 400 MG, QD
     Route: 048
     Dates: start: 20120612, end: 20120709
  3. REBETOL [Suspect]
     Dosage: 200 MG, QD
     Route: 048
     Dates: start: 20120710, end: 20120807
  4. REBETOL [Suspect]
     Dosage: 400 MG, QD
     Route: 048
     Dates: start: 20120910
  5. PEGINTRON [Suspect]
     Indication: CHRONIC HEPATITIS C
     Dosage: 1.5 ?G/KG, WEEK
     Route: 058
     Dates: start: 20120612, end: 20120619
  6. PEGINTRON [Suspect]
     Dosage: 0.75 ?G/KG, WEEK
     Route: 058
     Dates: start: 20120626, end: 20120731
  7. PEGINTRON [Suspect]
     Dosage: 1.5 ?G/KG, WEEK
     Route: 058
     Dates: start: 20120910
  8. JANUVIA [Concomitant]
     Dosage: 50 MG, QD
     Route: 048
  9. AMARYL [Concomitant]
     Dosage: 1 MG, QD
     Route: 048
  10. BLOPRESS [Concomitant]
     Dosage: 8 MG, QD
     Route: 048
  11. ATELEC [Concomitant]
     Dosage: 5 MG, QD
     Route: 048
  12. SANWA JUZENTAIHOYO [Concomitant]
     Dosage: 7.5 G, QD
     Route: 048
     Dates: end: 20120807
  13. SANWA JUZENTAIHOYO [Concomitant]
     Dosage: 7.5 G,QD
     Route: 048
     Dates: start: 20120910

REACTIONS (1)
  - Drug eruption [Recovered/Resolved]
